FAERS Safety Report 7973422-X (Version None)
Quarter: 2011Q4

REPORT INFORMATION
  Report Type: 
  Country: None (occurrence: None)
  Receive Date: 20111213
  Receipt Date: 20111201
  Transmission Date: 20120403
  Serious: Yes (Other)
  Sender: FDA-Public Use
  Company Number: US-ELI_LILLY_AND_COMPANY-US201112001406

PATIENT
  Sex: Female

DRUGS (1)
  1. FORTEO [Suspect]
     Indication: OSTEOPOROSIS
     Dosage: 20 UG, QD
     Route: 065

REACTIONS (8)
  - GAIT DISTURBANCE [None]
  - PAIN [None]
  - ARTHRALGIA [None]
  - RETINAL INJURY [None]
  - INSOMNIA [None]
  - VISUAL IMPAIRMENT [None]
  - HIP FRACTURE [None]
  - ARTHRITIS [None]
